FAERS Safety Report 8846602 (Version 1)
Quarter: 2012Q4

REPORT INFORMATION
  Report Type: 
  Country: GB (occurrence: GB)
  Receive Date: 20121017
  Receipt Date: 20121017
  Transmission Date: 20130627
  Serious: Yes (Hospitalization, Other)
  Sender: FDA-Public Use
  Company Number: GB-BAYER-2012-105675

PATIENT
  Age: 22 Year
  Sex: Female
  Weight: 53 kg

DRUGS (8)
  1. MIRENA [Suspect]
     Indication: CONTRACEPTION
     Dosage: 20 mcg/24hr, CONT
     Route: 015
     Dates: start: 201103, end: 201209
  2. CHLORPHENAMINE [Concomitant]
  3. EUMOVATE [Concomitant]
  4. FEXOFENADINE [Concomitant]
  5. FML [Concomitant]
  6. HYDROCORTISONE [Concomitant]
  7. PREDNISOLONE [Concomitant]
  8. VENTOLIN [Concomitant]

REACTIONS (9)
  - Asthma [Recovered/Resolved]
  - Eczema [Not Recovered/Not Resolved]
  - Conjunctivitis allergic [Recovering/Resolving]
  - Eyelid oedema [Not Recovered/Not Resolved]
  - Urticaria thermal [Not Recovered/Not Resolved]
  - Anaphylactic reaction [Recovering/Resolving]
  - Fatigue [Unknown]
  - Pyrexia [Unknown]
  - Chills [Unknown]
